FAERS Safety Report 19811195 (Version 2)
Quarter: 2021Q4

REPORT INFORMATION
  Report Type: Spontaneous
  Country: JP (occurrence: JP)
  Receive Date: 20210910
  Receipt Date: 20211015
  Transmission Date: 20220304
  Serious: Yes (Other)
  Sender: FDA-Public Use
  Company Number: JP-BAXTER-2021BAX027603

PATIENT
  Age: 48 Year
  Sex: Male
  Weight: 105 kg

DRUGS (6)
  1. SUPRANE [Suspect]
     Active Substance: DESFLURANE
     Indication: Maintenance of anaesthesia
     Route: 055
  2. FENTANYL [Concomitant]
     Active Substance: FENTANYL
     Indication: Induction of anaesthesia
     Route: 065
  3. REMIFENTANIL [Concomitant]
     Active Substance: REMIFENTANIL
     Indication: Induction of anaesthesia
     Route: 065
  4. PROPOFOL [Concomitant]
     Active Substance: PROPOFOL
     Indication: Induction of anaesthesia
     Route: 065
  5. ROCURONIUM [Concomitant]
     Active Substance: ROCURONIUM BROMIDE
     Indication: Induction of anaesthesia
     Route: 065
  6. OXYGEN [Concomitant]
     Active Substance: OXYGEN
     Indication: Maintenance of anaesthesia
     Route: 065

REACTIONS (3)
  - Acute kidney injury [Unknown]
  - Rhabdomyolysis [Unknown]
  - Hyperthermia malignant [Unknown]
